FAERS Safety Report 7332232-7 (Version None)
Quarter: 2011Q1

REPORT INFORMATION
  Report Type: 
  Country: None (occurrence: None)
  Receive Date: 20110304
  Receipt Date: 20110224
  Transmission Date: 20110831
  Serious: Yes (Other)
  Sender: FDA-Public Use
  Company Number: US-JNJFOC-20110208704

PATIENT
  Age: 18 Year
  Sex: Male

DRUGS (4)
  1. BENADRYL [Concomitant]
  2. REMICADE [Suspect]
     Indication: CROHN'S DISEASE
     Dosage: 14-15 INFUSIONS
     Route: 042
  3. REMICADE [Suspect]
     Dosage: 14-15 INFUSIONS
     Route: 042
  4. ACETAMINOPHEN [Concomitant]

REACTIONS (2)
  - CHEST DISCOMFORT [None]
  - RESPIRATORY DISORDER [None]
